FAERS Safety Report 14586112 (Version 2)
Quarter: 2018Q2

REPORT INFORMATION
  Report Type: Other
  Country: US (occurrence: US)
  Receive Date: 20180301
  Receipt Date: 20180419
  Transmission Date: 20180711
  Serious: Yes (Death, Other)
  Sender: FDA-Public Use
  Company Number: US-ACORDA-ACO_147106_2018

PATIENT
  Age: 64 Year
  Sex: Female

DRUGS (1)
  1. AMPYRA [Suspect]
     Active Substance: DALFAMPRIDINE
     Indication: MULTIPLE SCLEROSIS
     Dosage: 10 MG, BID
     Route: 065
     Dates: start: 20160630

REACTIONS (1)
  - Colon cancer stage IV [Fatal]

NARRATIVE: CASE EVENT DATE: 20180209
